FAERS Safety Report 7618485 (Version 3)
Quarter: 2013Q2

REPORT INFORMATION
  Report Type: Spontaneous
  Country: BE (occurrence: BE)
  Receive Date: 20101006
  Receipt Date: 20130529
  Transmission Date: 20140414
  Serious: Yes (Death, Other)
  Sender: FDA-Public Use
  Company Number: BE-BAYER-201041200GPV

PATIENT
  Age: 76 Year
  Sex: Male
  Weight: 90 kg

DRUGS (5)
  1. NEXAVAR [Suspect]
     Indication: HEPATIC CANCER METASTATIC
     Dosage: 200 MG, BID
     Route: 048
     Dates: start: 20100502, end: 20100508
  2. NEXAVAR [Suspect]
     Indication: HEPATIC CANCER METASTATIC
     Dosage: 400 MG, BID
     Route: 048
     Dates: start: 20100509, end: 20100520
  3. COVERSYL [Concomitant]
     Indication: HYPERTENSION
     Dosage: 5 MG (DAILY DOSE), QD, ORAL
     Route: 048
     Dates: start: 2008
  4. OMEPRAZOLE [Concomitant]
     Indication: GASTRIC ULCER
     Dosage: 20 MG (DAILY DOSE), QD, ORAL
     Route: 048
     Dates: start: 2008
  5. AUGMENTIN [Concomitant]
     Indication: BRONCHITIS
     Dosage: 875 MG, TID
     Route: 048
     Dates: start: 20100419, end: 20100429

REACTIONS (28)
  - Hepatitis fulminant [Fatal]
  - Pyrexia [Fatal]
  - Decreased appetite [Fatal]
  - Nausea [Fatal]
  - Vomiting [Fatal]
  - Diarrhoea [Fatal]
  - Muscle spasms [Fatal]
  - Ocular icterus [Fatal]
  - Hepatomegaly [Fatal]
  - Aspartate aminotransferase increased [Fatal]
  - Alanine aminotransferase increased [Fatal]
  - Blood bilirubin increased [Fatal]
  - Bilirubin conjugated increased [Fatal]
  - Blood albumin decreased [Fatal]
  - Influenza like illness [None]
  - Tinnitus [None]
  - Ascites [Not Recovered/Not Resolved]
  - Abdominal distension [Not Recovered/Not Resolved]
  - Jaundice [Not Recovered/Not Resolved]
  - Dysstasia [Not Recovered/Not Resolved]
  - Encephalopathy [Not Recovered/Not Resolved]
  - Stupor [Not Recovered/Not Resolved]
  - Fatigue [Not Recovered/Not Resolved]
  - Asthenia [Not Recovered/Not Resolved]
  - Myalgia [Unknown]
  - Coma hepatic [Not Recovered/Not Resolved]
  - Acute hepatic failure [Fatal]
  - Drug reaction with eosinophilia and systemic symptoms [None]
